FAERS Safety Report 17570885 (Version 1)
Quarter: 2020Q1

REPORT INFORMATION
  Report Type: Spontaneous
  Country: US (occurrence: US)
  Receive Date: 20200316
  Receipt Date: 20200316
  Transmission Date: 20200409
  Serious: Yes (Death)
  Sender: FDA-Public Use
  Company Number: None

PATIENT
  Age: 85 Year
  Sex: Male
  Weight: 71 kg

DRUGS (2)
  1. ETOPOSIDE (ETOPOSIDE 100MG/VIL INJ) [Suspect]
     Active Substance: ETOPOSIDE
     Indication: SMALL CELL LUNG CANCER
     Dosage: ?          OTHER STRENGTH:100 MG/VIL;?
     Route: 042
     Dates: start: 20190711, end: 20191203
  2. CARBOPLATIN (CARBOPLATIN 1150MG/VIL INJ) [Suspect]
     Active Substance: CARBOPLATIN
     Indication: SMALL CELL LUNG CANCER
     Dosage: ?          OTHER STRENGTH:150 MG/VIL;?
     Route: 042
     Dates: start: 20190711, end: 20191203

REACTIONS (7)
  - Leukopenia [None]
  - Anaemia [None]
  - Haematochezia [None]
  - Pancytopenia [None]
  - Haemorrhage [None]
  - Thrombocytopenia [None]
  - Faeces discoloured [None]

NARRATIVE: CASE EVENT DATE: 20191212
